FAERS Safety Report 5259881-4 (Version None)
Quarter: 2007Q1

REPORT INFORMATION
  Report Type: 
  Country: None (occurrence: None)
  Receive Date: 20070306
  Receipt Date: 20070220
  Transmission Date: 20070707
  Serious: Yes (Hospitalization)
  Sender: FDA-Public Use
  Company Number: S07-DEN-00968-01

PATIENT
  Sex: Female

DRUGS (2)
  1. AKARIN (CITALOPRAM HYDROBROMIDE) [Suspect]
     Indication: DEPRESSION
     Dosage: 10 MG QD PO
     Route: 048
     Dates: start: 20061026, end: 20061211
  2. NORLEVO(LEVONORGESTREL) [Suspect]
     Indication: POST COITAL CONTRACEPTION
     Dosage: 1.5 MG QD PO
     Route: 048
     Dates: start: 20061124, end: 20061124

REACTIONS (4)
  - COORDINATION ABNORMAL [None]
  - DRUG INTERACTION [None]
  - MUSCULAR WEAKNESS [None]
  - SYNCOPE [None]
